FAERS Safety Report 25003016 (Version 1)
Quarter: 2025Q1

REPORT INFORMATION
  Report Type: Spontaneous
  Country: GB (occurrence: GB)
  Receive Date: 20250224
  Receipt Date: 20250224
  Transmission Date: 20250408
  Serious: Yes (Other)
  Sender: HIKMA
  Company Number: None

PATIENT
  Age: 40 Year
  Sex: Female
  Weight: 56 kg

DRUGS (1)
  1. ACYCLOVIR [Suspect]
     Active Substance: ACYCLOVIR
     Indication: Genital herpes
     Route: 065
     Dates: start: 20250207

REACTIONS (3)
  - Headache [Not Recovered/Not Resolved]
  - Pyrexia [Recovered/Resolved]
  - Renal pain [Not Recovered/Not Resolved]

NARRATIVE: CASE EVENT DATE: 20250208
